FAERS Safety Report 4702766-X (Version None)
Quarter: 2005Q2

REPORT INFORMATION
  Report Type: 
  Country: None (occurrence: None)
  Receive Date: 20050628
  Receipt Date: 20050628
  Transmission Date: 20051028
  Serious: Yes (Other)
  Sender: FDA-Public Use
  Company Number: None

PATIENT
  Age: 29 Year
  Sex: Female
  Weight: 52.1637 kg

DRUGS (1)
  1. TRINESSA 28PK [Suspect]
     Indication: CONTRACEPTION
     Dosage: ONE BY MOUTH EVERY DAY
     Route: 048
     Dates: start: 20050301, end: 20050625

REACTIONS (3)
  - ACNE CYSTIC [None]
  - SCAR [None]
  - THERAPEUTIC RESPONSE UNEXPECTED WITH DRUG SUBSTITUTION [None]
